FAERS Safety Report 25527374 (Version 8)
Quarter: 2025Q4

REPORT INFORMATION
  Report Type: Spontaneous
  Country: US (occurrence: US)
  Receive Date: 20250708
  Receipt Date: 20251028
  Transmission Date: 20260118
  Serious: Yes (Hospitalization)
  Sender: BIOGEN
  Company Number: US-BIOGEN-2025BI01298121

PATIENT
  Age: 66 Year
  Sex: Male

DRUGS (5)
  1. TYSABRI [Suspect]
     Active Substance: NATALIZUMAB
     Indication: Multiple sclerosis
  2. TYSABRI [Suspect]
     Active Substance: NATALIZUMAB
     Dosage: DOSAGE TEXT:INFUSE OVER 1 HOUR
     Dates: start: 20080523, end: 20241226
  3. TYSABRI [Suspect]
     Active Substance: NATALIZUMAB
     Dates: start: 20080403, end: 20250407
  4. TYSABRI [Suspect]
     Active Substance: NATALIZUMAB
  5. TYSABRI [Suspect]
     Active Substance: NATALIZUMAB

REACTIONS (7)
  - Skin ulcer [Recovered/Resolved]
  - Urinary tract infection [Unknown]
  - Multiple sclerosis [Not Recovered/Not Resolved]
  - Influenza [Recovered/Resolved]
  - Prescribed underdose [Unknown]
  - General physical health deterioration [Not Recovered/Not Resolved]
  - COVID-19 [Recovered/Resolved]

NARRATIVE: CASE EVENT DATE: 20250101
